FAERS Safety Report 19864405 (Version 1)
Quarter: 2021Q3

REPORT INFORMATION
  Report Type: Spontaneous
  Country: US (occurrence: US)
  Receive Date: 20210920
  Receipt Date: 20210920
  Transmission Date: 20211014
  Serious: No
  Sender: FDA-Public Use
  Company Number: None

PATIENT

DRUGS (1)
  1. COLGATE RENEWAL SENSITIVITY REPAIR [Suspect]
     Active Substance: STANNOUS FLUORIDE

REACTIONS (2)
  - Gingival disorder [None]
  - Tooth disorder [None]
